FAERS Safety Report 7464162-4 (Version None)
Quarter: 2011Q2

REPORT INFORMATION
  Report Type: 
  Country: None (occurrence: None)
  Receive Date: 20110506
  Receipt Date: 20110503
  Transmission Date: 20111010
  Serious: Yes (Death, Hospitalization)
  Sender: FDA-Public Use
  Company Number: FR-MERCK-1105FRA00008

PATIENT
  Age: 49 Year
  Sex: Male
  Weight: 71 kg

DRUGS (9)
  1. INNOHEP [Suspect]
     Route: 058
     Dates: start: 20100605, end: 20100824
  2. EMEND [Suspect]
     Indication: PROPHYLAXIS OF NAUSEA AND VOMITING
     Route: 048
     Dates: start: 20100724, end: 20100728
  3. NEULASTA [Suspect]
     Route: 042
     Dates: start: 20100704, end: 20100704
  4. CARBOPLATIN [Suspect]
     Indication: METASTATIC BRONCHIAL CARCINOMA
     Route: 042
     Dates: start: 20100702
  5. PEMETREXED DISODIUM [Suspect]
     Route: 042
     Dates: end: 20100723
  6. PEMETREXED DISODIUM [Suspect]
     Indication: METASTATIC BRONCHIAL CARCINOMA
     Route: 042
     Dates: start: 20100702
  7. EMEND [Suspect]
     Route: 048
     Dates: start: 20100703, end: 20100707
  8. CARBOPLATIN [Suspect]
     Route: 042
     Dates: end: 20100723
  9. NEULASTA [Suspect]
     Route: 042
     Dates: start: 20100725, end: 20100725

REACTIONS (3)
  - INCORRECT DRUG ADMINISTRATION DURATION [None]
  - RENAL FAILURE ACUTE [None]
  - INAPPROPRIATE SCHEDULE OF DRUG ADMINISTRATION [None]
